FAERS Safety Report 9477172 (Version 2)
Quarter: 2015Q1

REPORT INFORMATION
  Report Type: Not Available
  Country: US (occurrence: US)
  Receive Date: 20130826
  Receipt Date: 20150218
  Transmission Date: 20150721
  Serious: No
  Sender: FDA-Public Use
  Company Number: US-AMARIN PHARMA, INC.-2013AMR000026

PATIENT
  Age: 79 Year
  Sex: Female
  Weight: 74.91 kg

DRUGS (7)
  1. SYNTHROID [Concomitant]
     Active Substance: LEVOTHYROXINE SODIUM
     Indication: THYROID DISORDER
     Route: 065
  2. PLAVIX [Concomitant]
     Active Substance: CLOPIDOGREL BISULFATE
     Indication: ANTICOAGULANT THERAPY
     Route: 065
     Dates: start: 201206
  3. BYSTOLIC [Concomitant]
     Active Substance: NEBIVOLOL HYDROCHLORIDE
     Indication: BLOOD PRESSURE
     Route: 065
  4. ASPIRIN. [Concomitant]
     Active Substance: ASPIRIN
     Indication: PRODUCT USED FOR UNKNOWN INDICATION
     Route: 065
  5. VASCEPA [Suspect]
     Active Substance: ETHYL ICOSAPENTATE
     Indication: BLOOD CHOLESTEROL INCREASED
     Route: 065
     Dates: start: 20130518
  6. VITAMIN [Concomitant]
     Active Substance: VITAMINS
     Indication: PRODUCT USED FOR UNKNOWN INDICATION
     Route: 065
  7. WELCHOL [Concomitant]
     Active Substance: COLESEVELAM HYDROCHLORIDE
     Indication: BLOOD CHOLESTEROL
     Dosage: SIX A DAY
     Route: 065
     Dates: start: 201206

REACTIONS (4)
  - Decreased appetite [None]
  - Abdominal distension [None]
  - Initial insomnia [Recovered/Resolved]
  - Eructation [None]

NARRATIVE: CASE EVENT DATE: 20130519
